FAERS Safety Report 8972228 (Version 1)
Quarter: 2012Q4

REPORT INFORMATION
  Report Type: 
  Country: SE (occurrence: SE)
  Receive Date: 20121219
  Receipt Date: 20121219
  Transmission Date: 20130627
  Serious: Yes (Hospitalization, Other)
  Sender: FDA-Public Use
  Company Number: SE-JNJFOC-20121203402

PATIENT
  Age: 17 Year
  Sex: Female

DRUGS (7)
  1. CONCERTA [Suspect]
     Indication: PRODUCT USED FOR UNKNOWN INDICATION
     Route: 048
     Dates: start: 20120927, end: 20121008
  2. CONCERTA [Suspect]
     Indication: PRODUCT USED FOR UNKNOWN INDICATION
     Route: 048
  3. CONCERTA [Suspect]
     Indication: PRODUCT USED FOR UNKNOWN INDICATION
     Route: 048
     Dates: start: 201208
  4. CONCERTA [Suspect]
     Indication: PRODUCT USED FOR UNKNOWN INDICATION
     Route: 048
     Dates: start: 20120323
  5. CONCERTA [Suspect]
     Indication: PRODUCT USED FOR UNKNOWN INDICATION
     Route: 048
     Dates: start: 201205
  6. RITALIN [Suspect]
     Indication: PRODUCT USED FOR UNKNOWN INDICATION
     Route: 065
     Dates: start: 201206
  7. UNSPECIFIED INGREDIENT [Suspect]
     Indication: INFLUENZA IMMUNISATION
     Dosage: 0.5ML1
     Route: 050
     Dates: start: 200911, end: 200911

REACTIONS (10)
  - Hypersomnia [Not Recovered/Not Resolved]
  - Muscular weakness [Unknown]
  - Dizziness [Unknown]
  - Balance disorder [Unknown]
  - Chest pain [Unknown]
  - Palpitations [Unknown]
  - Tachycardia [Unknown]
  - Weight decreased [Unknown]
  - Fatigue [Unknown]
  - Nausea [Unknown]
